FAERS Safety Report 10230344 (Version 2)
Quarter: 2014Q2

REPORT INFORMATION
  Report Type: Spontaneous
  Country: US (occurrence: US)
  Receive Date: 20140611
  Receipt Date: 20140620
  Transmission Date: 20141212
  Serious: Yes (Hospitalization)
  Sender: FDA-Public Use
  Company Number: US-BEH-2014042994

PATIENT
  Age: 51 Year
  Sex: Male
  Weight: 72 kg

DRUGS (13)
  1. ZEMAIRA [Suspect]
     Indication: EMPHYSEMA
     Route: 042
  2. ZEMAIRA [Suspect]
     Indication: EMPHYSEMA
     Route: 042
  3. SPIRIVA [Concomitant]
  4. ALBUTEROL [Concomitant]
  5. AMLODIPINE [Concomitant]
  6. TOBRAMYCIN [Concomitant]
  7. DIPHENHYDRAMINE [Concomitant]
  8. HEPARIN [Concomitant]
  9. SODIUM CHLORIDE [Concomitant]
  10. EPI PEN [Concomitant]
  11. ADVAIR [Concomitant]
  12. CLONAZEPAM [Concomitant]
  13. ACETAMINOPHEN [Concomitant]

REACTIONS (1)
  - Respiratory disorder [Unknown]
